FAERS Safety Report 20296673 (Version 2)
Quarter: 2023Q4

REPORT INFORMATION
  Report Type: Spontaneous
  Country: DE (occurrence: DE)
  Receive Date: 20220105
  Receipt Date: 20231208
  Transmission Date: 20240110
  Serious: Yes (Hospitalization, Other)
  Sender: FDA-Public Use
  Company Number: DE-RISINGPHARMA-DE-2021RISLIT00056

PATIENT
  Age: 75 Year
  Sex: Male

DRUGS (3)
  1. ROPIVACAINE HYDROCHLORIDE [Suspect]
     Active Substance: ROPIVACAINE HYDROCHLORIDE
     Indication: Back pain
     Dosage: 4ML OF 10 MG/ML
     Route: 008
  2. SODIUM CHLORIDE [Concomitant]
     Active Substance: SODIUM CHLORIDE
     Indication: Product used for unknown indication
     Dosage: 0.9%
     Route: 008
  3. TRIAMCINOLONE [Concomitant]
     Active Substance: TRIAMCINOLONE
     Indication: Product used for unknown indication
     Route: 008

REACTIONS (3)
  - Circulatory collapse [Recovered/Resolved]
  - Incorrect route of product administration [Unknown]
  - Somnolence [Recovered/Resolved]
